FAERS Safety Report 8242134-X (Version None)
Quarter: 2012Q1

REPORT INFORMATION
  Report Type: 
  Country: None (occurrence: None)
  Receive Date: 20120314
  Receipt Date: 20110617
  Transmission Date: 20120608
  Serious: No
  Sender: FDA-Public Use
  Company Number: PHHY2011US54252

PATIENT

DRUGS (1)
  1. FANAPT [Suspect]
     Dosage: UNK, ORAL
     Route: 048

REACTIONS (7)
  - SEXUAL DYSFUNCTION [None]
  - RASH [None]
  - RHINORRHOEA [None]
  - CHEST PAIN [None]
  - HYPOAESTHESIA [None]
  - PALPITATIONS [None]
  - INSOMNIA [None]
